FAERS Safety Report 15123674 (Version 1)
Quarter: 2018Q3

REPORT INFORMATION
  Report Type: Spontaneous
  Country: DE (occurrence: DE)
  Receive Date: 20180710
  Receipt Date: 20180710
  Transmission Date: 20181010
  Serious: Yes (Other)
  Sender: FDA-Public Use
  Company Number: DE-DRREDDYS-GER/GER/18/0101466

PATIENT
  Age: 42 Year
  Sex: Female
  Weight: 66 kg

DRUGS (1)
  1. CIPROFLOXACIN. [Suspect]
     Active Substance: CIPROFLOXACIN
     Indication: PERICHONDRITIS
     Dosage: 2 X DAY. 500MG
     Route: 048
     Dates: start: 20171028

REACTIONS (3)
  - Arthralgia [Unknown]
  - Arrhythmia [Unknown]
  - Tendon pain [Unknown]

NARRATIVE: CASE EVENT DATE: 201803
